FAERS Safety Report 24897351 (Version 1)
Quarter: 2025Q1

REPORT INFORMATION
  Report Type: Report from Study
  Country: CZ (occurrence: CZ)
  Receive Date: 20250129
  Receipt Date: 20250129
  Transmission Date: 20250408
  Serious: Yes (Other)
  Sender: TAKEDA
  Company Number: CZ-JNJFOC-20250181195

PATIENT

DRUGS (3)
  1. BORTEZOMIB [Suspect]
     Active Substance: BORTEZOMIB
     Indication: Plasma cell myeloma refractory
  2. DEXAMETHASONE [Suspect]
     Active Substance: DEXAMETHASONE
     Indication: Plasma cell myeloma refractory
  3. BELANTAMAB [Suspect]
     Active Substance: BELANTAMAB
     Indication: Plasma cell myeloma refractory
     Dosage: 1.9 MILLIGRAM/KILOGRAM, Q8WEEKS

REACTIONS (2)
  - Liver disorder [Unknown]
  - Intentional product use issue [Unknown]
